FAERS Safety Report 9741766 (Version 1)
Quarter: 2013Q4

REPORT INFORMATION
  Report Type: Spontaneous
  Country: BR (occurrence: BR)
  Receive Date: 20131210
  Receipt Date: 20131210
  Transmission Date: 20140711
  Serious: No
  Sender: FDA-Public Use
  Company Number: BR-ROCHE-1316086

PATIENT
  Age: 1 Year
  Sex: Male
  Weight: 11.2 kg

DRUGS (1)
  1. TAMIFLU [Suspect]
     Indication: INFLUENZA
     Route: 048
     Dates: start: 20131201

REACTIONS (1)
  - Expired drug administered [Unknown]
